FAERS Safety Report 25640656 (Version 1)
Quarter: 2025Q3

REPORT INFORMATION
  Report Type: Spontaneous
  Country: US (occurrence: US)
  Receive Date: 20250804
  Receipt Date: 20250804
  Transmission Date: 20251020
  Serious: Yes (Other)
  Sender: BRISTOL-MYERS SQUIBB COMPANY
  Company Number: US-BRISTOL-MYERS SQUIBB COMPANY-2025-107501

PATIENT
  Age: 64 Year
  Sex: Female
  Weight: 51.71 kg

DRUGS (5)
  1. REVLIMID [Suspect]
     Active Substance: LENALIDOMIDE
     Indication: Plasma cell myeloma
     Route: 048
     Dates: start: 202406, end: 20241007
  2. REVLIMID [Suspect]
     Active Substance: LENALIDOMIDE
     Route: 048
  3. XARELTO [Concomitant]
     Active Substance: RIVAROXABAN
     Indication: Product used for unknown indication
  4. TOLODODEKIN ALFA [Concomitant]
     Active Substance: TOLODODEKIN ALFA
     Indication: Product used for unknown indication
  5. ZOMETA [Concomitant]
     Active Substance: ZOLEDRONIC ACID
     Indication: Product used for unknown indication

REACTIONS (4)
  - Deep vein thrombosis [Unknown]
  - Diarrhoea [Unknown]
  - Superficial vein thrombosis [Unknown]
  - Off label use [Unknown]

NARRATIVE: CASE EVENT DATE: 20240601
